FAERS Safety Report 11809984 (Version 1)
Quarter: 2015Q4

REPORT INFORMATION
  Report Type: Spontaneous
  Country: US (occurrence: None)
  Receive Date: 20151207
  Receipt Date: 20151207
  Transmission Date: 20160305
  Serious: No
  Sender: FDA-Public Use
  Company Number: None

PATIENT

DRUGS (1)
  1. XYLOCAINE WITH EIP 1:100,000 APP [Suspect]
     Active Substance: EPINEPHRINE BITARTRATE\LIDOCAINE HYDROCHLORIDE
     Indication: MOLE EXCISION
     Route: 058
     Dates: start: 20151204, end: 20151204

REACTIONS (2)
  - Injection site haemorrhage [None]
  - Drug ineffective [None]

NARRATIVE: CASE EVENT DATE: 20151204
